FAERS Safety Report 19385320 (Version 1)
Quarter: 2021Q2

REPORT INFORMATION
  Report Type: Spontaneous
  Country: GB (occurrence: GB)
  Receive Date: 20210608
  Receipt Date: 20210608
  Transmission Date: 20210717
  Serious: Yes (Hospitalization)
  Sender: FDA-Public Use
  Company Number: GB-LUPIN PHARMACEUTICALS INC.-2021-08873

PATIENT
  Age: 3 Year
  Sex: Female

DRUGS (8)
  1. CIPROFLOXACIN. [Suspect]
     Active Substance: CIPROFLOXACIN
     Indication: HERPES SIMPLEX
     Dosage: UNK UNK, QID
     Route: 061
  2. VANCOMYCIN [Suspect]
     Active Substance: VANCOMYCIN
     Indication: KERATITIS
  3. CEFOTAXIME [Suspect]
     Active Substance: CEFOTAXIME SODIUM
     Indication: HERPES SIMPLEX
     Dosage: UNK UNK, QID
     Route: 042
  4. DEXAMETHASONE. [Concomitant]
     Active Substance: DEXAMETHASONE
     Indication: POSTOPERATIVE CARE
     Dosage: UNK (FOR 3 WEEKS)
     Route: 047
  5. CHLORAMPHENICOL [Concomitant]
     Active Substance: CHLORAMPHENICOL
     Indication: POSTOPERATIVE CARE
     Dosage: UNK (FOR 3 WEEKS)
     Route: 047
  6. CIPROFLOXACIN. [Suspect]
     Active Substance: CIPROFLOXACIN
     Indication: KERATITIS
  7. VANCOMYCIN [Suspect]
     Active Substance: VANCOMYCIN
     Indication: HERPES SIMPLEX
     Dosage: UNK UNK, TID
     Route: 042
  8. CEFOTAXIME [Suspect]
     Active Substance: CEFOTAXIME SODIUM
     Indication: KERATITIS

REACTIONS (1)
  - Drug ineffective [Unknown]
